FAERS Safety Report 7808005-5 (Version None)
Quarter: 2011Q4

REPORT INFORMATION
  Report Type: 
  Country: None (occurrence: None)
  Receive Date: 20111011
  Receipt Date: 20111011
  Transmission Date: 20120403
  Serious: Yes (Life-Threatening)
  Sender: FDA-Public Use
  Company Number: None

PATIENT
  Age: 52 Year
  Sex: Male
  Weight: 105 kg

DRUGS (1)
  1. HYDROMORPHONE HCL [Suspect]
     Indication: PROCEDURAL PAIN
     Dosage: 0.2MG
     Route: 042
     Dates: start: 20111003, end: 20111003

REACTIONS (7)
  - RESPIRATORY DISTRESS [None]
  - INCORRECT DOSE ADMINISTERED BY DEVICE [None]
  - RESPIRATORY RATE DECREASED [None]
  - CYANOSIS [None]
  - APNOEA [None]
  - CARDIO-RESPIRATORY ARREST [None]
  - MEDICATION ERROR [None]
